FAERS Safety Report 16799352 (Version 1)
Quarter: 2019Q3

REPORT INFORMATION
  Report Type: Report from Study
  Country: US (occurrence: US)
  Receive Date: 20190912
  Receipt Date: 20190912
  Transmission Date: 20191005
  Serious: No
  Sender: FDA-Public Use
  Company Number: US-BEH-2019106050

PATIENT
  Age: 62 Year
  Sex: Female

DRUGS (2)
  1. BERINERT [Suspect]
     Active Substance: HUMAN C1-ESTERASE INHIBITOR
     Indication: PROPHYLAXIS
  2. BERINERT [Suspect]
     Active Substance: HUMAN C1-ESTERASE INHIBITOR
     Indication: HEREDITARY ANGIOEDEMA
     Dosage: 3000 INTERNATIONAL UNIT, EVERY 4 DAYS
     Route: 058
     Dates: start: 20190716

REACTIONS (5)
  - Pain in extremity [Unknown]
  - Pruritus [Unknown]
  - Adverse reaction [Recovering/Resolving]
  - Therapeutic response unexpected [Unknown]
  - No adverse event [Unknown]

NARRATIVE: CASE EVENT DATE: 2019
